FAERS Safety Report 4945414-6 (Version None)
Quarter: 2006Q1

REPORT INFORMATION
  Report Type: 
  Country: None (occurrence: None)
  Receive Date: 20060307
  Receipt Date: 20060307
  Transmission Date: 20060701
  Serious: No
  Sender: FDA-Public Use
  Company Number: None

PATIENT
  Age: 81 Year
  Sex: Male
  Weight: 83.9154 kg

DRUGS (4)
  1. VANTAS [Suspect]
     Indication: DISEASE RECURRENCE
     Dosage: 1 YEAR PERIOD INSERT 1 TIME ARM
     Dates: start: 20050907
  2. VANTAS [Suspect]
     Indication: PROSTATE CANCER
     Dosage: 1 YEAR PERIOD INSERT 1 TIME ARM
     Dates: start: 20050907
  3. VANTAS [Suspect]
     Indication: DISEASE RECURRENCE
     Dosage: 1 YEAR PERIOD INSERT 1 TIME ARM
     Dates: start: 20050910
  4. VANTAS [Suspect]
     Indication: PROSTATE CANCER
     Dosage: 1 YEAR PERIOD INSERT 1 TIME ARM
     Dates: start: 20050910

REACTIONS (3)
  - DEVICE MIGRATION [None]
  - FAILURE OF IMPLANT [None]
  - PHARMACEUTICAL PRODUCT COMPLAINT [None]
